FAERS Safety Report 15452110 (Version 3)
Quarter: 2019Q1

REPORT INFORMATION
  Report Type: Spontaneous
  Country: AT (occurrence: AT)
  Receive Date: 20181001
  Receipt Date: 20190102
  Transmission Date: 20190417
  Serious: Yes (Other)
  Sender: FDA-Public Use
  Company Number: AT-MYLANLABS-2018M1050634

PATIENT
  Age: 45 Year
  Sex: Female

DRUGS (6)
  1. LETROZOLE. [Suspect]
     Active Substance: LETROZOLE
     Indication: BREAST CANCER METASTATIC
     Dosage: 2.5 MG, DAILY
     Route: 065
     Dates: start: 201704
  2. GOSERELIN [Suspect]
     Active Substance: GOSERELIN
     Indication: BREAST CANCER METASTATIC
     Dosage: 3.6 MG, CYCLIC (ON D1 Q28D) (QMO)
     Route: 058
     Dates: start: 201704
  3. DENOSUMAB [Suspect]
     Active Substance: DENOSUMAB
     Indication: BREAST CANCER METASTATIC
     Dosage: 120 MG, CYCLIC (ON D1 Q28D) (QMO)
     Route: 058
     Dates: start: 201704
  4. IBRANCE [Suspect]
     Active Substance: PALBOCICLIB
     Indication: BREAST CANCER METASTATIC
     Dosage: 125 MG, CYCLIC (DAILY ON D1-21, Q28D) (QMO)
     Route: 065
     Dates: start: 201704
  5. LETROZOLE. [Suspect]
     Active Substance: LETROZOLE
     Dosage: 3 MG, QD
     Route: 065
     Dates: start: 201704
  6. GOSERELIN [Suspect]
     Active Substance: GOSERELIN
     Dosage: 7 MG, MONTHLY
     Route: 058
     Dates: start: 201704

REACTIONS (7)
  - Alopecia [Unknown]
  - Gamma-glutamyltransferase increased [Recovering/Resolving]
  - Alanine aminotransferase increased [Recovering/Resolving]
  - Blood alkaline phosphatase increased [Recovering/Resolving]
  - Neutropenia [Unknown]
  - Aspartate aminotransferase increased [Recovering/Resolving]
  - Fatigue [Unknown]

NARRATIVE: CASE EVENT DATE: 201704
